FAERS Safety Report 4372699-X (Version None)
Quarter: 2004Q2

REPORT INFORMATION
  Report Type: 
  Country: None (occurrence: None)
  Receive Date: 20040526
  Receipt Date: 20040511
  Transmission Date: 20050107
  Serious: Yes (Life-Threatening, Hospitalization, Other)
  Sender: FDA-Public Use
  Company Number: 235336

PATIENT
  Age: 10 Year
  Sex: Female
  Weight: 24.1 kg

DRUGS (7)
  1. NORDITROPIN SIMPLEXX (SOMATROPIN) SOLUTION FOR INJECTION, 3.3 MG/ML [Suspect]
     Indication: GROWTH HORMONE DEFICIENCY
     Dosage: 0.8 MG, QD, SUBCUTANEOUS
     Route: 058
     Dates: start: 20020516, end: 20040208
  2. ERYMAX [Concomitant]
  3. CEFAMOX (CEFADROXIL) [Concomitant]
  4. CLINDAMYCIN HCL [Concomitant]
  5. CLAFORAN [Concomitant]
  6. BRICANYL [Concomitant]
  7. PULMICORT [Concomitant]

REACTIONS (19)
  - ALANINE AMINOTRANSFERASE INCREASED [None]
  - ANAEMIA [None]
  - ASPARTATE AMINOTRANSFERASE INCREASED [None]
  - ASTHMA [None]
  - AUTOIMMUNE DISORDER [None]
  - BIOPSY LYMPH GLAND ABNORMAL [None]
  - C-REACTIVE PROTEIN INCREASED [None]
  - COMPUTERISED TOMOGRAM THORAX ABNORMAL [None]
  - DRUG HYPERSENSITIVITY [None]
  - EYE OEDEMA [None]
  - HEADACHE [None]
  - HEPATOSPLENOMEGALY [None]
  - PHARYNGOLARYNGEAL PAIN [None]
  - PYREXIA [None]
  - RESPIRATORY DISTRESS [None]
  - STREPTOCOCCAL INFECTION [None]
  - SYSTEMIC INFLAMMATORY RESPONSE SYNDROME [None]
  - THROMBOCYTOPENIA [None]
  - UPPER RESPIRATORY TRACT INFECTION [None]
